FAERS Safety Report 8759730 (Version 30)
Quarter: 2015Q3

REPORT INFORMATION
  Report Type: Report from Study
  Country: CA (occurrence: CA)
  Receive Date: 20120829
  Receipt Date: 20150910
  Transmission Date: 20151125
  Serious: Yes (Hospitalization, Disabling, Other)
  Sender: FDA-Public Use
  Company Number: CA-ROCHE-1007873

PATIENT
  Age: 60 Year
  Sex: Female
  Weight: 99 kg

DRUGS (32)
  1. ACTEMRA [Suspect]
     Active Substance: TOCILIZUMAB
     Indication: RHEUMATOID ARTHRITIS
     Route: 042
     Dates: start: 20110906
  2. ACTEMRA [Suspect]
     Active Substance: TOCILIZUMAB
     Route: 042
     Dates: start: 20141022
  3. RITUXAN [Suspect]
     Active Substance: RITUXIMAB
     Indication: RHEUMATOID ARTHRITIS
     Dosage: DAY 1 AND DAY 15
     Route: 042
     Dates: start: 20110125, end: 20110208
  4. FUROSEMIDE. [Concomitant]
     Active Substance: FUROSEMIDE
     Route: 065
  5. SYMBICORT [Concomitant]
     Active Substance: BUDESONIDE\FORMOTEROL FUMARATE DIHYDRATE
     Route: 065
  6. ACETAMINOPHEN. [Concomitant]
     Active Substance: ACETAMINOPHEN
     Route: 065
  7. PREDNISONE. [Concomitant]
     Active Substance: PREDNISONE
  8. METHYLPREDNISOLONE. [Concomitant]
     Active Substance: METHYLPREDNISOLONE
     Indication: PREMEDICATION
     Route: 042
     Dates: start: 20110125, end: 20110208
  9. ACTEMRA [Suspect]
     Active Substance: TOCILIZUMAB
     Route: 042
     Dates: start: 20140715
  10. RENEDIL [Concomitant]
     Active Substance: FELODIPINE
     Route: 065
  11. METHOTREXATE [Concomitant]
     Active Substance: METHOTREXATE
  12. ACTEMRA [Suspect]
     Active Substance: TOCILIZUMAB
     Route: 042
     Dates: start: 20131205
  13. ACTEMRA [Suspect]
     Active Substance: TOCILIZUMAB
     Route: 042
     Dates: start: 20140130
  14. MACROBID [Suspect]
     Active Substance: NITROFURANTOIN\NITROFURANTOIN MONOHYDRATE
     Indication: URINARY TRACT INFECTION
     Dosage: FOR FIVE DAYS
     Route: 065
     Dates: end: 20141216
  15. NASONEX [Concomitant]
     Active Substance: MOMETASONE FUROATE
     Route: 065
  16. MACROBID [Suspect]
     Active Substance: NITROFURANTOIN\NITROFURANTOIN MONOHYDRATE
     Route: 065
     Dates: start: 201507, end: 20150722
  17. DIOVAN [Concomitant]
     Active Substance: VALSARTAN
     Route: 065
  18. FOLIC ACID. [Concomitant]
     Active Substance: FOLIC ACID
     Route: 065
  19. VITAMIN C [Concomitant]
     Active Substance: ASCORBIC ACID
     Route: 065
  20. LOSEC [Concomitant]
     Active Substance: OMEPRAZOLE
  21. VENTOLIN [Concomitant]
     Active Substance: ALBUTEROL SULFATE
     Route: 065
  22. CLINDAMYCIN [Concomitant]
     Active Substance: CLINDAMYCIN\CLINDAMYCIN PHOSPHATE
     Route: 065
     Dates: start: 20111209
  23. ACTEMRA [Suspect]
     Active Substance: TOCILIZUMAB
     Route: 042
     Dates: start: 20111004
  24. ACTONEL [Concomitant]
     Active Substance: RISEDRONATE SODIUM
     Route: 065
  25. CIPRO [Concomitant]
     Active Substance: CIPROFLOXACIN HYDROCHLORIDE
     Route: 065
     Dates: start: 20111212
  26. MOBICOX [Concomitant]
     Active Substance: MELOXICAM
     Route: 065
  27. VITAMIN B12 [Concomitant]
     Active Substance: CYANOCOBALAMIN
     Route: 065
  28. TYLENOL WITH CODEINE [Concomitant]
     Active Substance: ACETAMINOPHEN\CODEINE PHOSPHATE
  29. FENTANYL. [Concomitant]
     Active Substance: FENTANYL
     Route: 065
  30. LANTUS [Concomitant]
     Active Substance: INSULIN GLARGINE
     Route: 065
  31. SPIRIVA [Concomitant]
     Active Substance: TIOTROPIUM BROMIDE MONOHYDRATE
     Route: 065
  32. DIPHENHYDRAMINE HCL [Concomitant]
     Active Substance: DIPHENHYDRAMINE HYDROCHLORIDE
     Route: 048
     Dates: start: 20110125, end: 20110208

REACTIONS (22)
  - Skin ulcer [Not Recovered/Not Resolved]
  - Urticaria [Recovered/Resolved]
  - Accident [Unknown]
  - Pyrexia [Unknown]
  - Cellulitis [Recovered/Resolved]
  - Arthropathy [Unknown]
  - Weight decreased [Unknown]
  - Myocardial infarction [Recovering/Resolving]
  - Wound [Not Recovered/Not Resolved]
  - Wrist fracture [Unknown]
  - Localised infection [Unknown]
  - Weight increased [Unknown]
  - Malaise [Unknown]
  - Infusion related reaction [Unknown]
  - Influenza [Not Recovered/Not Resolved]
  - Foot fracture [Not Recovered/Not Resolved]
  - Urinary tract infection [Unknown]
  - Skin ulcer haemorrhage [Recovered/Resolved]
  - Injection site extravasation [Unknown]
  - Bronchitis [Recovered/Resolved]
  - Blood pressure increased [Unknown]
  - Sepsis [Not Recovered/Not Resolved]

NARRATIVE: CASE EVENT DATE: 20111023
